FAERS Safety Report 8254839-5 (Version None)
Quarter: 2012Q2

REPORT INFORMATION
  Report Type: 
  Country: None (occurrence: None)
  Receive Date: 20120403
  Receipt Date: 20120329
  Transmission Date: 20120825
  Serious: Yes (Hospitalization)
  Sender: FDA-Public Use
  Company Number: PHEH2011US07520

PATIENT
  Sex: Female

DRUGS (2)
  1. EXJADE [Suspect]
     Indication: SICKLE CELL ANAEMIA
     Dosage: 250 MG, QD
     Route: 048
  2. BLOOD TRANSFUSION, AUXILIARY PRODUCTS [Concomitant]

REACTIONS (2)
  - PYREXIA [None]
  - TRANSFUSION REACTION [None]
